FAERS Safety Report 24011787 (Version 1)
Quarter: 2024Q2

REPORT INFORMATION
  Report Type: Report from Study
  Country: IT (occurrence: IT)
  Receive Date: 20240625
  Receipt Date: 20240625
  Transmission Date: 20240716
  Serious: Yes (Other)
  Sender: FDA-Public Use
  Company Number: IT-JNJFOC-20161129346

PATIENT
  Age: 17 Year
  Sex: Female

DRUGS (18)
  1. INFLIXIMAB [Suspect]
     Active Substance: INFLIXIMAB
     Indication: Crohn^s disease
     Route: 041
     Dates: start: 20150603, end: 20160112
  2. INFLIXIMAB [Suspect]
     Active Substance: INFLIXIMAB
     Route: 041
     Dates: start: 20160329, end: 20160329
  3. INFLIXIMAB [Suspect]
     Active Substance: INFLIXIMAB
     Route: 041
     Dates: start: 20160607, end: 20160607
  4. INFLIXIMAB [Suspect]
     Active Substance: INFLIXIMAB
     Route: 041
     Dates: start: 20160802, end: 20160802
  5. INFLIXIMAB [Suspect]
     Active Substance: INFLIXIMAB
     Dosage: 251 MG
     Route: 041
     Dates: start: 20161110, end: 20170110
  6. INFLIXIMAB [Suspect]
     Active Substance: INFLIXIMAB
     Route: 041
     Dates: end: 20170222
  7. INFLIXIMAB [Suspect]
     Active Substance: INFLIXIMAB
     Route: 041
     Dates: start: 20170502, end: 20171019
  8. INFLIXIMAB [Suspect]
     Active Substance: INFLIXIMAB
     Route: 041
     Dates: start: 20110713, end: 20110831
  9. INFLIXIMAB [Suspect]
     Active Substance: INFLIXIMAB
     Route: 041
     Dates: start: 20111027, end: 20111228
  10. INFLIXIMAB [Suspect]
     Active Substance: INFLIXIMAB
     Route: 041
     Dates: start: 20120222, end: 20120222
  11. INFLIXIMAB [Suspect]
     Active Substance: INFLIXIMAB
     Route: 041
     Dates: start: 20120424, end: 20120424
  12. INFLIXIMAB [Suspect]
     Active Substance: INFLIXIMAB
     Route: 041
     Dates: start: 20120619, end: 20121213
  13. INFLIXIMAB [Suspect]
     Active Substance: INFLIXIMAB
     Route: 041
     Dates: start: 20130214, end: 20130703
  14. INFLIXIMAB [Suspect]
     Active Substance: INFLIXIMAB
     Route: 041
     Dates: start: 20130918, end: 20131120
  15. INFLIXIMAB [Suspect]
     Active Substance: INFLIXIMAB
     Route: 041
     Dates: start: 20140215, end: 20141230
  16. INFLIXIMAB [Suspect]
     Active Substance: INFLIXIMAB
     Route: 041
     Dates: start: 20150311, end: 20150311
  17. INFLIXIMAB [Suspect]
     Active Substance: INFLIXIMAB
     Route: 041
     Dates: start: 20150603, end: 20160112
  18. INFLIXIMAB [Suspect]
     Active Substance: INFLIXIMAB
     Route: 041
     Dates: start: 20150603, end: 20160112

REACTIONS (5)
  - Mitral valve incompetence [Not Recovered/Not Resolved]
  - Respiratory tract infection [Recovered/Resolved]
  - Syncope [Recovered/Resolved]
  - Tricuspid valve disease [Not Recovered/Not Resolved]
  - Mitral valve prolapse [Not Recovered/Not Resolved]

NARRATIVE: CASE EVENT DATE: 20161003
